FAERS Safety Report 5320956-2 (Version None)
Quarter: 2007Q2

REPORT INFORMATION
  Report Type: 
  Country: None (occurrence: None)
  Receive Date: 20070504
  Receipt Date: 20070423
  Transmission Date: 20071010
  Serious: Yes (Hospitalization, Other)
  Sender: FDA-Public Use
  Company Number: L07-USA-01812-01

PATIENT
  Age: 65 Year
  Sex: Female

DRUGS (7)
  1. CITALOPRAM HYDROBROMIDE [Suspect]
     Indication: DEPRESSION
  2. FENTANYL [Suspect]
     Indication: PAIN MANAGEMENT
     Dosage: 25 MCG; Q1HR TP
     Route: 061
  3. TABIPRAZOLE [Concomitant]
  4. TOLTERODINE [Concomitant]
  5. HYDROCODONE BITARTRATE [Concomitant]
  6. OVER-THE-COUNTER NON-STEROIDAL ANTI INFLAMMATORY [Concomitant]
  7. ANTI-INFLAMMATORY [Concomitant]

REACTIONS (13)
  - ABDOMINAL PAIN [None]
  - ALANINE AMINOTRANSFERASE DECREASED [None]
  - BACK PAIN [None]
  - BLOOD ALBUMIN DECREASED [None]
  - BLOOD ALKALINE PHOSPHATASE INCREASED [None]
  - BLOOD CHLORIDE DECREASED [None]
  - BLOOD SODIUM DECREASED [None]
  - DRUG INTERACTION [None]
  - PLATELET COUNT INCREASED [None]
  - RETROPERITONEAL HAEMORRHAGE [None]
  - SEROTONIN SYNDROME [None]
  - TACHYCARDIA [None]
  - WHITE BLOOD CELL COUNT INCREASED [None]
